FAERS Safety Report 7157396-X (Version None)
Quarter: 2010Q4

REPORT INFORMATION
  Report Type: 
  Country: None (occurrence: None)
  Receive Date: 20101214
  Receipt Date: 20101201
  Transmission Date: 20110411
  Serious: Yes (Hospitalization)
  Sender: FDA-Public Use
  Company Number: A0743586A

PATIENT
  Age: 62 Year
  Sex: Female
  Weight: 102.7 kg

DRUGS (2)
  1. AVANDIA [Suspect]
     Dosage: 4MG TWICE PER DAY
     Route: 048
     Dates: end: 20070521
  2. AVANDAMET [Suspect]
     Route: 048

REACTIONS (7)
  - BLOOD GLUCOSE ABNORMAL [None]
  - CARDIAC FAILURE [None]
  - CORONARY ARTERY DISEASE [None]
  - FATIGUE [None]
  - HEART INJURY [None]
  - HYPERTENSION [None]
  - MYOCARDIAL INFARCTION [None]
